FAERS Safety Report 9313381 (Version 2)
Quarter: 2013Q2

REPORT INFORMATION
  Report Type: Spontaneous
  Country: US (occurrence: US)
  Receive Date: 20130528
  Receipt Date: 20130624
  Transmission Date: 20140414
  Serious: Yes (Hospitalization)
  Sender: FDA-Public Use
  Company Number: US-GILEAD-2013-0075859

PATIENT
  Age: 44 Year
  Sex: Female

DRUGS (4)
  1. LETAIRIS [Suspect]
     Indication: PULMONARY HYPERTENSION
     Dosage: 10 MG, QD
     Dates: start: 20120718
  2. LETAIRIS [Suspect]
     Indication: SCLERODERMA
  3. LETAIRIS [Suspect]
     Indication: SYSTEMIC LUPUS ERYTHEMATOSUS
  4. LETAIRIS [Suspect]
     Indication: COLLAGEN-VASCULAR DISEASE

REACTIONS (1)
  - Small intestinal obstruction [Not Recovered/Not Resolved]
